FAERS Safety Report 16075784 (Version 2)
Quarter: 2019Q2

REPORT INFORMATION
  Report Type: Spontaneous
  Country: US (occurrence: US)
  Receive Date: 20190315
  Receipt Date: 20190430
  Transmission Date: 20190711
  Serious: No
  Sender: FDA-Public Use
  Company Number: US-ASTRAZENECA-2019SE28150

PATIENT
  Age: 24558 Day
  Sex: Female
  Weight: 88.5 kg

DRUGS (3)
  1. GLIPIZIDE XL [Concomitant]
     Active Substance: GLIPIZIDE
     Dosage: STARTED WITHIN THE LAST YEAR
     Route: 048
  2. METFORMIN [Concomitant]
     Active Substance: METFORMIN HYDROCHLORIDE
     Dosage: STARTED 6-7 YEARS AGO
     Route: 048
  3. BYDUREON BCISE [Suspect]
     Active Substance: EXENATIDE
     Indication: TYPE 2 DIABETES MELLITUS
     Route: 058

REACTIONS (4)
  - Incorrect dose administered [Unknown]
  - Injection site haemorrhage [Unknown]
  - Injection site discharge [Unknown]
  - Device leakage [Unknown]

NARRATIVE: CASE EVENT DATE: 20190208
